FAERS Safety Report 5120332-1 (Version None)
Quarter: 2006Q4

REPORT INFORMATION
  Report Type: 
  Country: None (occurrence: None)
  Receive Date: 20061002
  Receipt Date: 20061002
  Transmission Date: 20070319
  Serious: Yes (Life-Threatening)
  Sender: FDA-Public Use
  Company Number: None

PATIENT
  Age: 88 Year
  Sex: Male

DRUGS (1)
  1. TRAVOPROST [Suspect]
     Indication: GLAUCOMA
     Dosage: GTTS AS DIRECTED AS DIRECTED OPHTHALMIC
     Route: 047
     Dates: start: 20060214, end: 20060220

REACTIONS (3)
  - ERYTHEMA [None]
  - PRURITUS [None]
  - VISION BLURRED [None]
